FAERS Safety Report 4995459-5 (Version None)
Quarter: 2006Q2

REPORT INFORMATION
  Report Type: 
  Country: None (occurrence: None)
  Receive Date: 20060504
  Receipt Date: 20060419
  Transmission Date: 20061013
  Serious: Yes (Other)
  Sender: FDA-Public Use
  Company Number: S06-USA-01637-01

PATIENT
  Sex: Female

DRUGS (3)
  1. LEXAPRO [Suspect]
  2. LEXAPRO [Suspect]
  3. LEXAPRO [Suspect]

REACTIONS (2)
  - DRUG DEPENDENCE [None]
  - DRUG WITHDRAWAL SYNDROME [None]
